FAERS Safety Report 20748026 (Version 1)
Quarter: 2022Q2

REPORT INFORMATION
  Report Type: Spontaneous
  Country: IN (occurrence: None)
  Receive Date: 20220426
  Receipt Date: 20220426
  Transmission Date: 20220721
  Serious: Yes (Hospitalization, Other)
  Sender: FDA-Public Use
  Company Number: IN-Unichem Pharmaceuticals (USA) Inc-UCM202204-000402

PATIENT
  Age: 85 Year
  Sex: Female

DRUGS (5)
  1. MEMANTINE [Suspect]
     Active Substance: MEMANTINE
     Indication: Dementia
  2. CEFOPERAZONE\SULBACTAM [Concomitant]
     Active Substance: CEFOPERAZONE\SULBACTAM
     Indication: Urinary tract infection
     Dosage: UNKNOWN
     Route: 042
  3. THYROXINE [Concomitant]
     Active Substance: LEVOTHYROXINE
     Indication: Hypothyroidism
     Dosage: UNKNOWN
  4. LINAGLIPTIN [Concomitant]
     Active Substance: LINAGLIPTIN
     Indication: Diabetes mellitus
     Dosage: UNKNOWN
  5. ERYTHROPOIETIN [Concomitant]
     Active Substance: ERYTHROPOIETIN
     Indication: Chronic kidney disease
     Dosage: UNKNOWN

REACTIONS (1)
  - Encephalopathy [Recovering/Resolving]
